FAERS Safety Report 6207506-3 (Version None)
Quarter: 2009Q2

REPORT INFORMATION
  Report Type: 
  Country: None (occurrence: None)
  Receive Date: 20090526
  Receipt Date: 20090511
  Transmission Date: 20091009
  Serious: Yes (Hospitalization)
  Sender: FDA-Public Use
  Company Number: 1000005086

PATIENT
  Age: 53 Year
  Sex: Female

DRUGS (8)
  1. CELEXA [Suspect]
     Dosage: 10 MG (10 MG, 1 IN 1 D), ORAL
     Route: 048
     Dates: start: 20080306
  2. TOPIRAMATE [Suspect]
     Dosage: 100 MG (50 MG, 2 IN 1 D), ORAL; 50 MG (25 MG,2 IN 1 D), ORAL; 25 MG (25 MG, 1 IN 1 D), ORAL
     Route: 048
  3. TOPIRAMATE [Suspect]
     Dosage: 100 MG (50 MG, 2 IN 1 D), ORAL; 50 MG (25 MG,2 IN 1 D), ORAL; 25 MG (25 MG, 1 IN 1 D), ORAL
     Route: 048
     Dates: start: 20080103
  4. CLONAZEPAM [Concomitant]
  5. CLONIDINE [Concomitant]
  6. MAXERAN [Concomitant]
  7. NEXIUM [Concomitant]
  8. VIOKASE [Concomitant]

REACTIONS (7)
  - BALANCE DISORDER [None]
  - GAIT DISTURBANCE [None]
  - NAUSEA [None]
  - POSITIVE ROMBERGISM [None]
  - PSYCHOMOTOR SKILLS IMPAIRED [None]
  - TREMOR [None]
  - VISUAL IMPAIRMENT [None]
